FAERS Safety Report 15539369 (Version 2)
Quarter: 2018Q4

REPORT INFORMATION
  Report Type: Report from Study
  Country: DE (occurrence: DE)
  Receive Date: 20181022
  Receipt Date: 20181104
  Transmission Date: 20190205
  Serious: Yes (Death, Hospitalization)
  Sender: FDA-Public Use
  Company Number: PHHO2018DE010681

PATIENT
  Age: 65 Year
  Sex: Female
  Weight: 66 kg

DRUGS (3)
  1. MYCOPHENOLATE MOFETIL. [Suspect]
     Active Substance: MYCOPHENOLATE MOFETIL
     Indication: CHRONIC GRAFT VERSUS HOST DISEASE
     Dosage: 1000 MG, BID
     Route: 042
     Dates: start: 20180824, end: 20181009
  2. METHYLPREDNISOLONE. [Concomitant]
     Active Substance: METHYLPREDNISOLONE
     Indication: CHRONIC GRAFT VERSUS HOST DISEASE
     Dosage: 4 MG, QD
     Route: 048
     Dates: start: 20180824, end: 20181009
  3. CYCLOSPORIN [Concomitant]
     Active Substance: CYCLOSPORINE
     Indication: CHRONIC GRAFT VERSUS HOST DISEASE
     Dosage: 90 MG, BID
     Route: 050
     Dates: start: 20180831, end: 20181009

REACTIONS (2)
  - Gastrointestinal haemorrhage [Recovered/Resolved]
  - Pneumonia [Fatal]

NARRATIVE: CASE EVENT DATE: 20180927
